FAERS Safety Report 17793809 (Version 1)
Quarter: 2020Q2

REPORT INFORMATION
  Report Type: Spontaneous
  Country: MX (occurrence: MX)
  Receive Date: 20200515
  Receipt Date: 20200515
  Transmission Date: 20200714
  Serious: Yes (Hospitalization)
  Sender: FDA-Public Use
  Company Number: MX-BAUSCH-BL-2020-014279

PATIENT
  Age: 19 Month
  Sex: Male
  Weight: 10.8 kg

DRUGS (1)
  1. BRIMONIDINE [Suspect]
     Active Substance: BRIMONIDINE TARTRATE
     Indication: PRODUCT USED FOR UNKNOWN INDICATION
     Dosage: INGESTED APPROXIMATELY 1.5 ML (3 MG)
     Route: 048

REACTIONS (2)
  - Accidental exposure to product by child [Unknown]
  - Toxicity to various agents [Recovered/Resolved]
